FAERS Safety Report 9179160 (Version 1)
Quarter: 2013Q1

REPORT INFORMATION
  Report Type: Spontaneous
  Country: US (occurrence: US)
  Receive Date: 20130321
  Receipt Date: 20130321
  Transmission Date: 20140127
  Serious: Yes (Other)
  Sender: FDA-Public Use
  Company Number: US-GLAXOSMITHKLINE-A1015650A

PATIENT
  Sex: Male

DRUGS (2)
  1. POTIGA [Suspect]
     Indication: CONVULSION
     Dosage: 600MG PER DAY
     Route: 048
     Dates: start: 201301, end: 201302
  2. LAMOTRIGINE [Concomitant]

REACTIONS (2)
  - Convulsion [Unknown]
  - Dizziness [Unknown]
